FAERS Safety Report 4848193-6 (Version None)
Quarter: 2005Q4

REPORT INFORMATION
  Report Type: 
  Country: None (occurrence: None)
  Receive Date: 20051206
  Receipt Date: 20051123
  Transmission Date: 20060501
  Serious: Yes (Life-Threatening, Hospitalization)
  Sender: FDA-Public Use
  Company Number: GXBR2005US01712

PATIENT
  Age: 44 Year
  Sex: Male
  Weight: 69.8 kg

DRUGS (7)
  1. THIORIDAZINE HCL [Suspect]
     Indication: PSYCHOTIC DISORDER
     Dosage: 100 MG, TID; ORAL
     Route: 048
     Dates: end: 20051111
  2. VANCOMYCIN [Suspect]
     Indication: STAPHYLOCOCCAL INFECTION
     Dosage: 1 G, Q12H; INTRAVENOUS
     Route: 042
     Dates: start: 20051120, end: 20051119
  3. DAPTOMYCIN          (DAPTOMYCIN) [Suspect]
     Indication: STAPHYLOCOCCAL INFECTION
     Dosage: 600 MG, BID; INTRAVENOUS
     Route: 042
     Dates: start: 20051119
  4. ACYCLOVIR [Concomitant]
  5. CASPOFUNGIN [Concomitant]
  6. FLAGYL [Concomitant]
  7. LEVAQUIN [Concomitant]

REACTIONS (11)
  - CONVULSION [None]
  - DRUG INTERACTION [None]
  - FACE INJURY [None]
  - FUNGAL INFECTION [None]
  - INTRACRANIAL VENOUS SINUS THROMBOSIS [None]
  - RESPIRATORY DISORDER [None]
  - RESPIRATORY PARALYSIS [None]
  - SEPSIS [None]
  - SINUSITIS [None]
  - STAPHYLOCOCCAL INFECTION [None]
  - THROMBOPHLEBITIS [None]
